FAERS Safety Report 20798656 (Version 2)
Quarter: 2022Q2

REPORT INFORMATION
  Report Type: Report from Study
  Country: US (occurrence: US)
  Receive Date: 20220507
  Receipt Date: 20220613
  Transmission Date: 20220720
  Serious: Yes (Other)
  Sender: FDA-Public Use
  Company Number: US-TAKEDA-2022TUS029258

PATIENT
  Sex: Male
  Weight: 70 kg

DRUGS (2)
  1. IXAZOMIB [Suspect]
     Active Substance: IXAZOMIB
     Indication: Plasma cell myeloma
     Dosage: 3 MILLIGRAM
     Route: 065
     Dates: start: 202204, end: 20220516
  2. IXAZOMIB [Suspect]
     Active Substance: IXAZOMIB
     Indication: Amyloidosis

REACTIONS (2)
  - Renal impairment [Unknown]
  - Rash maculo-papular [Unknown]
